FAERS Safety Report 12612212 (Version 1)
Quarter: 2016Q3

REPORT INFORMATION
  Report Type: Spontaneous
  Country: GB (occurrence: GB)
  Receive Date: 20160801
  Receipt Date: 20160801
  Transmission Date: 20161109
  Serious: Yes (Other)
  Sender: FDA-Public Use
  Company Number: GB-OTSUKA-2016_018388

PATIENT
  Age: 21 Year
  Sex: Male

DRUGS (2)
  1. ABILIFY MAINTENA [Suspect]
     Active Substance: ARIPIPRAZOLE
     Indication: PRODUCT USED FOR UNKNOWN INDICATION
     Dosage: 1 DF, 1/1 MONTHS
     Route: 030
     Dates: start: 20160109
  2. INSULIN [Concomitant]
     Active Substance: INSULIN NOS
     Indication: PRODUCT USED FOR UNKNOWN INDICATION
     Dosage: UNK
     Route: 065

REACTIONS (5)
  - Sciatica [Unknown]
  - Septic embolus [Unknown]
  - Injection site mass [Unknown]
  - Pain [Unknown]
  - Purulence [Unknown]

NARRATIVE: CASE EVENT DATE: 20160111
